FAERS Safety Report 7968882-4 (Version None)
Quarter: 2011Q4

REPORT INFORMATION
  Report Type: 
  Country: None (occurrence: None)
  Receive Date: 20111209
  Receipt Date: 20111125
  Transmission Date: 20120403
  Serious: Yes (Hospitalization)
  Sender: FDA-Public Use
  Company Number: GB-CELGENEUS-167-21880-11113775

PATIENT
  Sex: Male
  Weight: 66 kg

DRUGS (6)
  1. REVLIMID [Suspect]
     Dosage: 10 MILLIGRAM
     Route: 048
     Dates: start: 20110607, end: 20110628
  2. LANSOPRAZOLE [Suspect]
     Dosage: 30 MILLIGRAM
     Route: 048
  3. DEXAMETHASONE [Suspect]
     Indication: MULTIPLE MYELOMA
     Route: 048
     Dates: start: 20110503, end: 20110506
  4. NEFOPAM [Suspect]
     Dosage: 180 MILLIGRAM
     Route: 048
     Dates: end: 20110510
  5. REVLIMID [Suspect]
     Indication: MULTIPLE MYELOMA
     Dosage: 25 MILLIGRAM
     Route: 048
     Dates: start: 20110503, end: 20110510
  6. DEXAMETHASONE [Suspect]
     Dosage: 10 MILLIGRAM
     Route: 048
     Dates: start: 20110511, end: 20110516

REACTIONS (1)
  - HYPONATRAEMIA [None]
